FAERS Safety Report 14530824 (Version 3)
Quarter: 2018Q3

REPORT INFORMATION
  Report Type: Report from Study
  Country: IT (occurrence: IT)
  Receive Date: 20180214
  Receipt Date: 20180705
  Transmission Date: 20181010
  Serious: Yes (Death, Life-Threatening, Other)
  Sender: FDA-Public Use
  Company Number: IT-PFIZER INC-2018062859

PATIENT
  Age: 66 Year
  Sex: Female
  Weight: 71 kg

DRUGS (2)
  1. IBRANCE [Suspect]
     Active Substance: PALBOCICLIB
     Indication: BREAST CANCER METASTATIC
     Dosage: 125 MG, 1X/DAY
     Route: 048
     Dates: start: 20171213
  2. FASLODEX [Concomitant]
     Active Substance: FULVESTRANT
     Indication: BREAST CANCER METASTATIC
     Dosage: 500 MG, CYCLIC
     Route: 030
     Dates: start: 20171213, end: 20171227

REACTIONS (9)
  - Hypovolaemic shock [Fatal]
  - Dehydration [Fatal]
  - Vomiting [Fatal]
  - Viral diarrhoea [Fatal]
  - Multiple organ dysfunction syndrome [Fatal]
  - Cyanosis [Unknown]
  - Shock [Unknown]
  - Disseminated intravascular coagulation [Unknown]
  - Thrombocytopenia [Fatal]

NARRATIVE: CASE EVENT DATE: 20171231
